FAERS Safety Report 9373014 (Version 1)
Quarter: 2013Q2

REPORT INFORMATION
  Report Type: Spontaneous
  Country: US (occurrence: US)
  Receive Date: 20130627
  Receipt Date: 20130627
  Transmission Date: 20140414
  Serious: Yes (Hospitalization)
  Sender: FDA-Public Use
  Company Number: US-BAYER-2013-077717

PATIENT
  Age: 66 Year
  Sex: Female

DRUGS (1)
  1. STIVARGA [Suspect]
     Indication: COLORECTAL CANCER METASTATIC
     Dosage: UNK
     Route: 048
     Dates: start: 20130529, end: 20130607

REACTIONS (12)
  - Pyrexia [None]
  - Pneumonia [None]
  - Neutropenia [None]
  - Thrombocytopenia [None]
  - Confusional state [None]
  - Asthenia [None]
  - Nausea [None]
  - Musculoskeletal chest pain [None]
  - Hepatic enzyme increased [None]
  - Unresponsive to stimuli [Not Recovered/Not Resolved]
  - Body temperature decreased [Not Recovered/Not Resolved]
  - Hypotension [Not Recovered/Not Resolved]
